FAERS Safety Report 7003370-3 (Version None)
Quarter: 2010Q3

REPORT INFORMATION
  Report Type: 
  Country: None (occurrence: None)
  Receive Date: 20100920
  Receipt Date: 20100901
  Transmission Date: 20110219
  Serious: No
  Sender: FDA-Public Use
  Company Number: US-PFIZER INC-2010111192

PATIENT
  Sex: Female
  Weight: 102.4 kg

DRUGS (1)
  1. LYRICA [Suspect]
     Indication: FIBROMYALGIA
     Dosage: 75 MG, 2X/DAY
     Route: 048
     Dates: start: 20100720, end: 20100801

REACTIONS (4)
  - ARTHRALGIA [None]
  - EUPHORIC MOOD [None]
  - FATIGUE [None]
  - MUSCULOSKELETAL DISCOMFORT [None]
